FAERS Safety Report 18925238 (Version 1)
Quarter: 2021Q1

REPORT INFORMATION
  Report Type: Spontaneous
  Country: HU (occurrence: HU)
  Receive Date: 20210222
  Receipt Date: 20210222
  Transmission Date: 20210420
  Serious: Yes (Hospitalization)
  Sender: FDA-Public Use
  Company Number: HU-BIOGEN-2021BI00971986

PATIENT
  Age: 8 Month
  Sex: Female

DRUGS (10)
  1. VIGANTOL [Concomitant]
     Indication: PRODUCT USED FOR UNKNOWN INDICATION
     Dosage: 1?2 DROPS PO
     Route: 065
  2. CERUCAL [Concomitant]
     Active Substance: METOCLOPRAMIDE HYDROCHLORIDE
     Indication: PRODUCT USED FOR UNKNOWN INDICATION
     Dosage: 3X2MG IV
     Route: 042
  3. NACL [Concomitant]
     Active Substance: SODIUM CHLORIDE
     Indication: PRODUCT USED FOR UNKNOWN INDICATION
     Dosage: PRN
     Route: 055
  4. SPINRAZA [Suspect]
     Active Substance: NUSINERSEN
     Route: 065
     Dates: start: 202012
  5. MESTINON [Concomitant]
     Active Substance: PYRIDOSTIGMINE BROMIDE
     Indication: PRODUCT USED FOR UNKNOWN INDICATION
     Route: 047
  6. FUROSEMID [Concomitant]
     Active Substance: FUROSEMIDE
     Indication: PRODUCT USED FOR UNKNOWN INDICATION
     Dosage: 1X4MG IV
     Route: 042
  7. SPINRAZA [Suspect]
     Active Substance: NUSINERSEN
     Indication: SPINAL MUSCULAR ATROPHY
     Route: 065
  8. CHLORALHYDRATE [Concomitant]
     Active Substance: CHLORAL HYDRATE
     Indication: PRODUCT USED FOR UNKNOWN INDICATION
     Dosage: PRN 5ML
     Route: 048
  9. SPINRAZA [Suspect]
     Active Substance: NUSINERSEN
     Dosage: FILL UP DOSE AFTER THIRD DOSE
     Route: 065
  10. ALGOPYRIN [Concomitant]
     Indication: PRODUCT USED FOR UNKNOWN INDICATION
     Dosage: 0.2 ML S.Z.I.V
     Route: 065

REACTIONS (8)
  - Bradycardia [Unknown]
  - Bronchitis [Not Recovered/Not Resolved]
  - Clostridium difficile infection [Unknown]
  - Oxygen saturation decreased [Unknown]
  - Feeding disorder [Unknown]
  - Subcutaneous emphysema [Unknown]
  - Pneumomediastinum [Unknown]
  - Stenotrophomonas infection [Unknown]

NARRATIVE: CASE EVENT DATE: 20210118
